FAERS Safety Report 10523907 (Version 2)
Quarter: 2014Q4

REPORT INFORMATION
  Report Type: Report from Study
  Country: JP (occurrence: JP)
  Receive Date: 20141017
  Receipt Date: 20141028
  Transmission Date: 20150528
  Serious: Yes (Hospitalization)
  Sender: FDA-Public Use
  Company Number: JP-UCBSA-2014014645

PATIENT
  Age: 65 Year
  Sex: Male
  Weight: 55 kg

DRUGS (4)
  1. CABAGIN U [Concomitant]
     Indication: EPIGASTRIC DISCOMFORT
     Dosage: UNK, AS NEEDED (PRN)
     Route: 048
     Dates: start: 201403
  2. *CARBAMAZEPINE [Suspect]
     Active Substance: CARBAMAZEPINE
     Dosage: 400 MG, 2X/DAY (BID)
     Route: 048
     Dates: start: 20140722
  3. *CARBAMAZEPINE [Suspect]
     Active Substance: CARBAMAZEPINE
     Indication: EPILEPSY
     Dosage: 200 MG, 2X/DAY (BID)
     Route: 048
     Dates: start: 20140401, end: 20140722
  4. AMLODIPINE BESILATE [Concomitant]
     Active Substance: AMLODIPINE BESYLATE
     Indication: HYPERTENSION
     Dosage: 5 MG, ONCE DAILY (QD)
     Route: 048
     Dates: start: 20140416

REACTIONS (1)
  - Femur fracture [Recovering/Resolving]

NARRATIVE: CASE EVENT DATE: 20141008
